FAERS Safety Report 16326490 (Version 1)
Quarter: 2019Q2

REPORT INFORMATION
  Report Type: Spontaneous
  Country: US (occurrence: US)
  Receive Date: 20190517
  Receipt Date: 20190517
  Transmission Date: 20190711
  Serious: No
  Sender: FDA-Public Use
  Company Number: US-TAIHO ONCOLOGY  INC-EU-2018-01736

PATIENT
  Age: 48 Year
  Sex: Male

DRUGS (8)
  1. CLONIDINE. [Concomitant]
     Active Substance: CLONIDINE
     Dosage: NI
  2. EVOXAC [Concomitant]
     Active Substance: CEVIMELINE HYDROCHLORIDE
     Dosage: NI
  3. ATENOLOL. [Concomitant]
     Active Substance: ATENOLOL
     Dosage: NI
  4. LIPITOR [Concomitant]
     Active Substance: ATORVASTATIN CALCIUM
     Dosage: NI
  5. ZOFRAN [Concomitant]
     Active Substance: ONDANSETRON HYDROCHLORIDE
     Dosage: NI
  6. MS CONTIN [Concomitant]
     Active Substance: MORPHINE SULFATE
     Dosage: NI
  7. LONSURF [Suspect]
     Active Substance: TIPIRACIL HYDROCHLORIDE\TRIFLURIDINE
     Indication: COLORECTAL CANCER METASTATIC
     Dosage: TWO 15MG AND TWO 20MG TABLETS.?CURRENT CYCLE UNKNOWN.
     Route: 048
     Dates: start: 20180404, end: 20181003
  8. GABAPENTIN. [Concomitant]
     Active Substance: GABAPENTIN
     Dosage: NI

REACTIONS (1)
  - Disease progression [Unknown]

NARRATIVE: CASE EVENT DATE: 20181003
